FAERS Safety Report 6254871-7 (Version None)
Quarter: 2009Q3

REPORT INFORMATION
  Report Type: 
  Country: None (occurrence: None)
  Receive Date: 20090702
  Receipt Date: 20090617
  Transmission Date: 20100115
  Serious: Yes (Life-Threatening)
  Sender: FDA-Public Use
  Company Number: NZ-AVENTIS-200916409GDDC

PATIENT
  Age: 65 Year
  Sex: Female

DRUGS (5)
  1. LEFLUNOMIDE [Suspect]
     Dates: start: 20040722, end: 20041210
  2. METHOTREXATE [Suspect]
     Dates: start: 20021001, end: 20041203
  3. PANTOPRAZOLE SODIUM [Concomitant]
  4. NAPROXEN [Concomitant]
  5. FOLIC ACID [Concomitant]

REACTIONS (4)
  - COUGH [None]
  - DYSPNOEA [None]
  - PNEUMONITIS [None]
  - RENAL FAILURE [None]
